FAERS Safety Report 8307718-9 (Version None)
Quarter: 2012Q2

REPORT INFORMATION
  Report Type: 
  Country: None (occurrence: None)
  Receive Date: 20120424
  Receipt Date: 20120418
  Transmission Date: 20120825
  Serious: Yes (Hospitalization)
  Sender: FDA-Public Use
  Company Number: PHHO2012US006102

PATIENT
  Sex: Male

DRUGS (2)
  1. AFINITOR [Suspect]
     Indication: RENAL CELL CARCINOMA
  2. BEVACIZUMAB [Suspect]
     Indication: RENAL CELL CARCINOMA

REACTIONS (1)
  - INTESTINAL OBSTRUCTION [None]
